FAERS Safety Report 8505091-4 (Version None)
Quarter: 2012Q2

REPORT INFORMATION
  Report Type: 
  Country: None (occurrence: None)
  Receive Date: 20120405
  Receipt Date: 20100720
  Transmission Date: 20120825
  Serious: Yes (Other)
  Sender: FDA-Public Use
  Company Number: PHHY2010US37659

PATIENT
  Age: 49 Year
  Sex: Female
  Weight: 67.4 kg

DRUGS (5)
  1. RECLAST [Suspect]
     Indication: OSTEOPOROSIS
     Dosage: 5 MG, INTRAVENOUS
     Route: 042
     Dates: start: 20091015
  2. NORCO [Concomitant]
  3. FENTANYL [Concomitant]
  4. SOMA [Concomitant]
  5. PREMARIN [Concomitant]

REACTIONS (5)
  - OSTEONECROSIS OF JAW [None]
  - ABSCESS JAW [None]
  - PERIODONTAL DISEASE [None]
  - KLEBSIELLA INFECTION [None]
  - JAW DISORDER [None]
